FAERS Safety Report 20032267 (Version 1)
Quarter: 2021Q4

REPORT INFORMATION
  Report Type: Spontaneous
  Country: MX (occurrence: MX)
  Receive Date: 20211103
  Receipt Date: 20211103
  Transmission Date: 20220303
  Serious: Yes (Other)
  Sender: FDA-Public Use
  Company Number: MX-BoehringerIngelheim-2021-BI-133440

PATIENT
  Age: 66 Year
  Sex: Male

DRUGS (2)
  1. OFEV [Suspect]
     Active Substance: NINTEDANIB
     Indication: Post-acute COVID-19 syndrome
     Dosage: 150 MG EVERY 24 HOURS
     Dates: start: 20211001, end: 20211020
  2. OFEV [Suspect]
     Active Substance: NINTEDANIB
     Indication: Fibrosis

REACTIONS (3)
  - Cerebrovascular accident [Unknown]
  - Off label use [Recovered/Resolved]
  - Therapeutic response unexpected [Recovered/Resolved]

NARRATIVE: CASE EVENT DATE: 20211001
